FAERS Safety Report 11788583 (Version 2)
Quarter: 2016Q1

REPORT INFORMATION
  Report Type: Spontaneous
  Country: US (occurrence: US)
  Receive Date: 20151201
  Receipt Date: 20160125
  Transmission Date: 20160525
  Serious: Yes (Hospitalization, Other)
  Sender: FDA-Public Use
  Company Number: US-APOTEX-2015AP014805

PATIENT
  Age: 41 Year
  Sex: Male

DRUGS (16)
  1. ZANTAC [Suspect]
     Active Substance: RANITIDINE HYDROCHLORIDE
     Indication: GASTROOESOPHAGEAL REFLUX DISEASE
     Dosage: 150 MG, BID
     Route: 048
     Dates: start: 20151027
  2. ELIQUIS [Suspect]
     Active Substance: APIXABAN
     Indication: ANTICOAGULANT THERAPY
     Dosage: 5 MG, UNK
     Route: 065
     Dates: end: 20151029
  3. PROTONIX [Concomitant]
     Active Substance: PANTOPRAZOLE SODIUM
     Indication: PRODUCT USED FOR UNKNOWN INDICATION
     Dosage: UNK
     Route: 065
  4. METOPROLOL. [Concomitant]
     Active Substance: METOPROLOL
     Indication: PRODUCT USED FOR UNKNOWN INDICATION
     Dosage: UNK
     Route: 065
  5. KLONOPIN [Concomitant]
     Active Substance: CLONAZEPAM
     Indication: PRODUCT USED FOR UNKNOWN INDICATION
     Dosage: UNK
     Route: 065
  6. POTASSIUM [Concomitant]
     Active Substance: POTASSIUM
     Indication: PRODUCT USED FOR UNKNOWN INDICATION
     Dosage: UNK
     Route: 065
  7. TIKOSYN [Suspect]
     Active Substance: DOFETILIDE
     Dosage: 500 MG, SINGLE
     Route: 048
     Dates: start: 20151029, end: 20151029
  8. TIKOSYN [Suspect]
     Active Substance: DOFETILIDE
     Dosage: 500 MG, SINGLE
     Route: 048
     Dates: start: 20151029, end: 20151029
  9. TIKOSYN [Suspect]
     Active Substance: DOFETILIDE
     Indication: SINUS RHYTHM
     Dosage: 500 MG, BID
     Route: 048
     Dates: start: 20151027, end: 20151027
  10. ELIQUIS [Suspect]
     Active Substance: APIXABAN
     Dosage: 2.5 MG, UNK
     Route: 065
     Dates: start: 20151029
  11. LOSARTAN. [Concomitant]
     Active Substance: LOSARTAN
     Indication: PRODUCT USED FOR UNKNOWN INDICATION
     Dosage: UNK
     Route: 065
  12. MAGNESIUM [Concomitant]
     Active Substance: MAGNESIUM
     Indication: PRODUCT USED FOR UNKNOWN INDICATION
     Dosage: UNK
     Route: 065
  13. NICOTINE TRANSDERMAL SYSTEM [Suspect]
     Active Substance: NICOTINE
     Indication: TOBACCO ABUSE
     Dosage: UNK
     Route: 065
     Dates: start: 20151029, end: 20151102
  14. TIKOSYN [Suspect]
     Active Substance: DOFETILIDE
     Dosage: 500 MG, SINGLE
     Route: 048
     Dates: start: 20151028, end: 20151028
  15. ASPIRIN                            /00002701/ [Concomitant]
     Active Substance: ASPIRIN
     Indication: PRODUCT USED FOR UNKNOWN INDICATION
     Dosage: 81 MG, UNK
  16. TIKOSYN [Suspect]
     Active Substance: DOFETILIDE
     Dosage: 500 MG, SINGLE
     Route: 048
     Dates: start: 20151028, end: 20151028

REACTIONS (7)
  - Paranoia [Recovered/Resolved]
  - Ventricular tachycardia [Unknown]
  - Psychotic disorder [Recovered/Resolved]
  - Extrasystoles [Unknown]
  - Hallucination [Recovered/Resolved]
  - Troponin increased [Unknown]
  - Sinus tachycardia [Unknown]

NARRATIVE: CASE EVENT DATE: 20151029
